FAERS Safety Report 5052140-4 (Version None)
Quarter: 2006Q3

REPORT INFORMATION
  Report Type: 
  Country: None (occurrence: None)
  Receive Date: 20060712
  Receipt Date: 20060712
  Transmission Date: 20061208
  Serious: Yes (Disabling)
  Sender: FDA-Public Use
  Company Number: None

PATIENT
  Age: 57 Year
  Sex: Female
  Weight: 72.5755 kg

DRUGS (1)
  1. AMITRIPTYLINE HCL [Suspect]
     Indication: NEURALGIA
     Dosage: 1/2 TAB AT BED TIME ORAL
     Route: 048
     Dates: start: 20050826, end: 20050828

REACTIONS (1)
  - TINNITUS [None]
